FAERS Safety Report 6503113-3 (Version None)
Quarter: 2009Q4

REPORT INFORMATION
  Report Type: 
  Country: None (occurrence: None)
  Receive Date: 20091217
  Receipt Date: 20091208
  Transmission Date: 20100525
  Serious: Yes (Hospitalization)
  Sender: FDA-Public Use
  Company Number: CH-ROCHE-673621

PATIENT
  Age: 64 Year
  Sex: Male
  Weight: 67 kg

DRUGS (7)
  1. LARIAM [Suspect]
     Indication: PROGRESSIVE MULTIFOCAL LEUKOENCEPHALOPATHY
     Route: 048
     Dates: start: 20091015
  2. REMERON [Suspect]
     Indication: PROGRESSIVE MULTIFOCAL LEUKOENCEPHALOPATHY
     Route: 048
     Dates: start: 20091015
  3. KALETRA [Suspect]
     Route: 048
     Dates: start: 20090729
  4. TRUVADA [Suspect]
     Route: 048
     Dates: start: 20090729
  5. KEPPRA [Concomitant]
     Indication: EPILEPSY
     Route: 048
     Dates: start: 20090901
  6. BENERVA [Concomitant]
     Route: 048
     Dates: start: 20090901
  7. BACTRIM [Concomitant]
     Indication: PROPHYLAXIS
     Route: 048
     Dates: start: 20091019

REACTIONS (3)
  - CONFUSIONAL STATE [None]
  - HALLUCINATION [None]
  - IMMUNE RECONSTITUTION SYNDROME [None]
